FAERS Safety Report 7549624-3 (Version None)
Quarter: 2011Q2

REPORT INFORMATION
  Report Type: 
  Country: None (occurrence: None)
  Receive Date: 20110615
  Receipt Date: 20110609
  Transmission Date: 20111010
  Serious: Yes (Hospitalization)
  Sender: FDA-Public Use
  Company Number: US-SANOFI-AVENTIS-2011SA036849

PATIENT
  Age: 71 Year
  Sex: Male

DRUGS (5)
  1. METFORMIN HCL [Concomitant]
  2. PLAVIX [Suspect]
     Indication: STENT PLACEMENT
     Route: 048
     Dates: start: 20040331
  3. PRILOSEC [Concomitant]
  4. PROTONIX [Concomitant]
  5. PLAVIX [Suspect]
     Route: 048
     Dates: start: 20020101

REACTIONS (7)
  - BLOOD GLUCOSE INCREASED [None]
  - WEIGHT DECREASED [None]
  - CONSTIPATION [None]
  - VASCULAR OCCLUSION [None]
  - ABDOMINAL PAIN UPPER [None]
  - VOMITING [None]
  - DIARRHOEA [None]
